FAERS Safety Report 8805885 (Version 1)
Quarter: 2012Q4

REPORT INFORMATION
  Report Type: Spontaneous
  Country: US (occurrence: None)
  Receive Date: 20120917
  Receipt Date: 20120917
  Transmission Date: 20130627
  Serious: Yes (Hospitalization)
  Sender: FDA-Public Use
  Company Number: 2012-0817

PATIENT
  Age: 81 Year
  Sex: Female

DRUGS (1)
  1. KYPROLIS [Suspect]
     Indication: MULTIPLE MYELOMA
     Route: 042
     Dates: start: 201207, end: 20120820

REACTIONS (6)
  - Vomiting [None]
  - Confusional state [None]
  - Memory impairment [None]
  - Abasia [None]
  - Back pain [None]
  - Malaise [None]
